FAERS Safety Report 4555795-3 (Version None)
Quarter: 2005Q1

REPORT INFORMATION
  Report Type: 
  Country: None (occurrence: None)
  Receive Date: 20050110
  Receipt Date: 20040723
  Transmission Date: 20050727
  Serious: Yes (Hospitalization)
  Sender: FDA-Public Use
  Company Number: 04P-163-0262214-00

PATIENT
  Age: 72 Year
  Sex: Male

DRUGS (5)
  1. DILAUDID [Suspect]
  2. FOLIC ACID [Concomitant]
  3. CYANOCOBALAMIN [Concomitant]
  4. PEMETREXED [Concomitant]
  5. GEMCITABINE [Concomitant]

REACTIONS (1)
  - CONFUSIONAL STATE [None]
